FAERS Safety Report 7873601-6 (Version None)
Quarter: 2011Q4

REPORT INFORMATION
  Report Type: 
  Country: None (occurrence: None)
  Receive Date: 20111030
  Receipt Date: 20110506
  Transmission Date: 20120403
  Serious: No
  Sender: FDA-Public Use
  Company Number: US-AMGEN-USASP2011023764

PATIENT
  Age: 32 Year
  Sex: Female

DRUGS (2)
  1. HUMIRA [Concomitant]
     Dates: start: 20101101
  2. ENBREL [Suspect]
     Indication: PSORIASIS
     Dosage: UNK
     Dates: start: 20100101, end: 20101101

REACTIONS (3)
  - ARTHRALGIA [None]
  - MOUTH ULCERATION [None]
  - ANTINUCLEAR ANTIBODY INCREASED [None]
